FAERS Safety Report 10189781 (Version 1)
Quarter: 2014Q2

REPORT INFORMATION
  Report Type: Spontaneous
  Country: US (occurrence: US)
  Receive Date: 20140522
  Receipt Date: 20140522
  Transmission Date: 20141212
  Serious: Yes (Other)
  Sender: FDA-Public Use
  Company Number: US-SANOFI-AVENTIS-2013SA048057

PATIENT
  Sex: Female

DRUGS (8)
  1. LANTUS [Suspect]
     Route: 065
  2. TRAZODONE [Concomitant]
  3. LYRICA [Concomitant]
     Route: 048
  4. VESICARE [Concomitant]
  5. METFORMIN [Concomitant]
  6. LISINOPRIL [Concomitant]
  7. ZOLOFT [Concomitant]
     Route: 048
  8. NEURONTIN [Concomitant]
     Route: 048

REACTIONS (1)
  - Drug hypersensitivity [Unknown]
